FAERS Safety Report 9018144 (Version 1)
Quarter: 2013Q1

REPORT INFORMATION
  Report Type: Report from Study
  Country: BR (occurrence: BR)
  Receive Date: 20130117
  Receipt Date: 20130117
  Transmission Date: 20140127
  Serious: Yes (Other)
  Sender: FDA-Public Use
  Company Number: BR-AMGEN-BRACT2011056550

PATIENT
  Age: 15 Year
  Sex: Female
  Weight: 59 kg

DRUGS (8)
  1. ETANERCEPT [Suspect]
     Indication: JUVENILE IDIOPATHIC ARTHRITIS
     Dosage: 50 MG, ONE APPLICATION WEEKLY
     Route: 058
     Dates: start: 2009
  2. ETANERCEPT [Suspect]
     Indication: JUVENILE IDIOPATHIC ARTHRITIS
     Dosage: STRENGTH 50 MG APPLY 0.7 ONCE WEEKLY
     Route: 058
     Dates: start: 200901
  3. ETANERCEPT [Suspect]
     Dosage: STRENGTH 25 MG ON THE SATURDAYS AND ON TUESDAY OF STRENGTH 25 MG APPLY 0.4
     Dates: start: 20111202, end: 20121015
  4. ETANERCEPT [Suspect]
     Dosage: UNK
     Dates: start: 201109
  5. METHOTREXATE SODIUM [Suspect]
     Dosage: UNK
  6. TIMOLOL MALEATE [Concomitant]
     Indication: GLAUCOMA
     Dosage: UNK
  7. PREDNISONE [Concomitant]
     Indication: JUVENILE IDIOPATHIC ARTHRITIS
     Dosage: 5 MG, 2X/DAY
     Dates: start: 2002
  8. NAPROXEN [Concomitant]
     Dosage: 250 MG, 2X/DAY
     Dates: end: 2009

REACTIONS (9)
  - Hypersensitivity [Unknown]
  - Wrong technique in drug usage process [Unknown]
  - Pain [Unknown]
  - Swelling [Not Recovered/Not Resolved]
  - Gait disturbance [Unknown]
  - Malaise [Unknown]
  - Joint swelling [Unknown]
  - Nodule [Unknown]
  - Anaemia [Unknown]
